FAERS Safety Report 15135041 (Version 2)
Quarter: 2018Q3

REPORT INFORMATION
  Report Type: Spontaneous
  Country: US (occurrence: US)
  Receive Date: 20180712
  Receipt Date: 20180716
  Transmission Date: 20181010
  Serious: No
  Sender: FDA-Public Use
  Company Number: US-PFIZER INC-2018114081

PATIENT
  Age: 68 Year
  Sex: Female
  Weight: 77.56 kg

DRUGS (1)
  1. LYRICA [Suspect]
     Active Substance: PREGABALIN
     Indication: NEURALGIA
     Dosage: 75 MG, (1 CAPSULE) TWICE DAILY
     Route: 048
     Dates: start: 20180309, end: 20180616

REACTIONS (2)
  - Pruritus generalised [Unknown]
  - Nervousness [Unknown]
